FAERS Safety Report 14208145 (Version 1)
Quarter: 2017Q4

REPORT INFORMATION
  Report Type: Report from Study
  Country: CH (occurrence: CH)
  Receive Date: 20171121
  Receipt Date: 20171121
  Transmission Date: 20180321
  Serious: Yes (Other)
  Sender: FDA-Public Use
  Company Number: CH-ROCHE-2024943

PATIENT
  Sex: Female

DRUGS (7)
  1. TRASTUZUMAB. [Suspect]
     Active Substance: TRASTUZUMAB
     Indication: BREAST CANCER
     Dosage: 4 MG/KG OVER 90 MINUTES
     Route: 042
  2. RANITIDINE. [Concomitant]
     Active Substance: RANITIDINE
     Route: 042
  3. PACLITAXEL. [Suspect]
     Active Substance: PACLITAXEL
     Indication: BREAST CANCER METASTATIC
  4. TRASTUZUMAB. [Suspect]
     Active Substance: TRASTUZUMAB
     Indication: BREAST CANCER METASTATIC
     Dosage: 2 MG/KG OVER 30 MINUTES
     Route: 042
  5. DEXAMETHASONE. [Concomitant]
     Active Substance: DEXAMETHASONE
     Route: 042
  6. PACLITAXEL. [Suspect]
     Active Substance: PACLITAXEL
     Indication: BREAST CANCER
     Dosage: DAY 1, 8, 15, REPEATED EVERY 28 DAYS, OVER 60 MINUTES
     Route: 042
  7. CLEMASTIN [Concomitant]
     Active Substance: CLEMASTINE
     Route: 042

REACTIONS (10)
  - Haematotoxicity [Unknown]
  - Mucosal inflammation [Unknown]
  - Nail toxicity [Unknown]
  - Asthenia [Unknown]
  - Fatigue [Unknown]
  - Blindness [Unknown]
  - Neurotoxicity [Unknown]
  - Cardiac failure [Unknown]
  - Bone marrow infiltration [Unknown]
  - Alopecia [Unknown]
